FAERS Safety Report 9908350 (Version 1)
Quarter: 2013Q2

REPORT INFORMATION
  Report Type: Spontaneous
  Country: US (occurrence: None)
  Receive Date: 20130305
  Receipt Date: 20130305
  Transmission Date: 20140414
  Serious: Yes (Other)
  Sender: FDA-Public Use
  Company Number: 163-21880-12051271

PATIENT
  Sex: 0

DRUGS (2)
  1. VIDAZA (AZACITIDINE) (UNKNOWN) [Suspect]
     Indication: MYELODYSPLASTIC SYNDROME
  2. REVLIMID (LENALIDOMIDE) (CAPSULES) [Suspect]
     Indication: MYELODYSPLASTIC SYNDROME
     Route: 048

REACTIONS (3)
  - Acute myeloid leukaemia [None]
  - Myelodysplastic syndrome transformation [None]
  - Treatment failure [None]
